FAERS Safety Report 13002041 (Version 2)
Quarter: 2016Q4

REPORT INFORMATION
  Report Type: Spontaneous
  Country: NL (occurrence: NL)
  Receive Date: 20161206
  Receipt Date: 20161212
  Transmission Date: 20170207
  Serious: Yes (Other)
  Sender: FDA-Public Use
  Company Number: NL-PFIZER INC-2016562032

PATIENT
  Age: 65 Year
  Sex: Female
  Weight: 85 kg

DRUGS (3)
  1. ATORVASTATINE PFIZER [Suspect]
     Active Substance: ATORVASTATIN
     Indication: MYOCARDIAL INFARCTION
     Dosage: 1 DF, 1X/DAY
     Route: 048
     Dates: start: 201501, end: 201611
  2. ACETYLSALICYLZUUR [Concomitant]
     Active Substance: ASPIRIN
     Dosage: 1 DF, 1X/DAY
     Route: 048
     Dates: start: 201305, end: 20161105
  3. SIMVASTATINE [Suspect]
     Active Substance: SIMVASTATIN
     Indication: MYOCARDIAL INFARCTION
     Dosage: 1 DF, 1X/DAY
     Route: 048
     Dates: start: 201305, end: 201307

REACTIONS (5)
  - Mental disorder [Unknown]
  - Disturbance in attention [Unknown]
  - Insomnia [Unknown]
  - Myalgia [Unknown]
  - Arrhythmia [Recovered/Resolved]

NARRATIVE: CASE EVENT DATE: 20130701
